FAERS Safety Report 15230039 (Version 2)
Quarter: 2019Q3

REPORT INFORMATION
  Report Type: Spontaneous
  Country: US (occurrence: US)
  Receive Date: 20180802
  Receipt Date: 20190806
  Transmission Date: 20191004
  Serious: Yes (Other)
  Sender: FDA-Public Use
  Company Number: US-ACCORD-062872

PATIENT
  Age: 74 Year
  Sex: Female

DRUGS (8)
  1. PEGFILGRASTIM [Concomitant]
     Active Substance: PEGFILGRASTIM
     Dosage: STRENGTH: 0.6 MG/0.6 ML
     Route: 058
     Dates: start: 20141011
  2. PERTUZUMAB. [Concomitant]
     Active Substance: PERTUZUMAB
     Dosage: STRENGTH: 30 MG/ ML
     Route: 042
     Dates: start: 20141009
  3. LORAZEPAM. [Concomitant]
     Active Substance: LORAZEPAM
     Dosage: STRENGTH: 2 MG/ML??ROUTE OF ADMINISTRATION: INJECTABLE IV
     Route: 042
     Dates: start: 20141009
  4. DOCETAXEL ACCORD [Suspect]
     Active Substance: DOCETAXEL
     Indication: BREAST CANCER
     Dosage: STRENGTH: 20 MG/ML??NO OF CYCLE: 06
     Route: 042
     Dates: start: 20141009, end: 20150225
  5. DEXAMETHASONE. [Concomitant]
     Active Substance: DEXAMETHASONE
     Dosage: STRENGTH: 10 MG/ML
     Route: 042
     Dates: start: 20141009, end: 20150225
  6. PARAPLATIN [Suspect]
     Active Substance: CARBOPLATIN
     Indication: BREAST CANCER
     Dosage: STRENGTH: 10 MG/ML??NO OF CYCLE: 06
     Route: 042
     Dates: start: 20141009, end: 20150225
  7. TRASTUZUMAB. [Concomitant]
     Active Substance: TRASTUZUMAB
     Dosage: STRENGTH: 21 MG/ML
     Route: 042
     Dates: start: 20141009, end: 20160107
  8. PALONOSETRON. [Concomitant]
     Active Substance: PALONOSETRON HYDROCHLORIDE
     Dosage: STRENGTH: 0.25 MG/ 5 ML
     Route: 042
     Dates: start: 20141009, end: 20150225

REACTIONS (1)
  - Alopecia [Not Recovered/Not Resolved]

NARRATIVE: CASE EVENT DATE: 201410
